FAERS Safety Report 24943506 (Version 1)
Quarter: 2025Q1

REPORT INFORMATION
  Report Type: Spontaneous
  Country: US (occurrence: None)
  Receive Date: 20250207
  Receipt Date: 20250207
  Transmission Date: 20250409
  Serious: Yes (Life-Threatening, Other)
  Sender: FDA-CTU
  Company Number: None

PATIENT
  Age: 13 Year
  Sex: Male
  Weight: 59.85 kg

DRUGS (2)
  1. ATOMOXETINE [Suspect]
     Active Substance: ATOMOXETINE
     Indication: Attention deficit hyperactivity disorder
     Dosage: FREQUENCY : DAILY;?
     Route: 048
     Dates: start: 20250103, end: 20250121
  2. VITAMINS [Concomitant]
     Active Substance: VITAMINS

REACTIONS (4)
  - Suicidal ideation [None]
  - Self-destructive behaviour [None]
  - Crying [None]
  - Therapy cessation [None]

NARRATIVE: CASE EVENT DATE: 20250121
